FAERS Safety Report 5290695-5 (Version None)
Quarter: 2007Q2

REPORT INFORMATION
  Report Type: 
  Country: None (occurrence: None)
  Receive Date: 20070405
  Receipt Date: 20070405
  Transmission Date: 20071010
  Serious: Yes (Life-Threatening, Hospitalization)
  Sender: FDA-Public Use
  Company Number: None

PATIENT
  Age: 63 Year
  Sex: Female

DRUGS (9)
  1. ASPIRIN [Suspect]
     Indication: PROPHYLAXIS
     Dosage: 81MG  PO  QD   (DURATION: YEARS)
     Route: 048
  2. ASPIRIN [Suspect]
     Indication: TRANSIENT ISCHAEMIC ATTACK
     Dosage: 81MG  PO  QD   (DURATION: YEARS)
     Route: 048
  3. CLOPIDOGREL [Suspect]
     Dosage: 75 MG PO QD
     Route: 048
  4. METFORMIN HCL [Concomitant]
  5. LISINOPRIL [Concomitant]
  6. GLUCOTROL [Concomitant]
  7. PLAQUENIL [Concomitant]
  8. HYDROCHLOROTHIAZIDE [Concomitant]
  9. RANITIDINE [Concomitant]

REACTIONS (5)
  - ASTHENIA [None]
  - DIZZINESS [None]
  - FAECES DISCOLOURED [None]
  - GASTRITIS [None]
  - HAEMOGLOBIN DECREASED [None]
